FAERS Safety Report 9799277 (Version 2)
Quarter: 2014Q1

REPORT INFORMATION
  Report Type: Spontaneous
  Country: US (occurrence: US)
  Receive Date: 20140106
  Receipt Date: 20140106
  Transmission Date: 20141002
  Serious: No
  Sender: FDA-Public Use
  Company Number: US-GILEAD-2010-0034159

PATIENT
  Age: 41 Year
  Sex: Female

DRUGS (46)
  1. LETAIRIS [Suspect]
     Indication: PULMONARY HYPERTENSION
     Route: 048
     Dates: start: 20101130
  2. TRACLEER [Concomitant]
     Indication: PULMONARY HYPERTENSION
  3. ASPIRIN [Concomitant]
  4. CATAPRESS [Concomitant]
  5. TRICOR [Concomitant]
  6. LASIX [Concomitant]
     Indication: OEDEMA
  7. HYDRODIURIL [Concomitant]
  8. EFFIENT [Concomitant]
     Indication: CORONARY ARTERY DISEASE
  9. ZOCOR [Concomitant]
  10. TRILIPIX [Concomitant]
  11. SINGULAIR [Concomitant]
  12. DUONEB [Concomitant]
  13. SOLU-MEDROL [Concomitant]
  14. PROVENTIL [Concomitant]
  15. DELTASONE [Concomitant]
  16. TESSALON [Concomitant]
     Indication: BRONCHITIS
  17. TESSALON [Concomitant]
     Indication: LUNG DISORDER
  18. SYMBICORT [Concomitant]
  19. GLUCOTROL [Concomitant]
  20. LANTUS [Concomitant]
     Indication: DIABETES MELLITUS
  21. JANUVIA [Concomitant]
  22. NOVOLOG [Concomitant]
  23. COLACE [Concomitant]
  24. PROTONIX [Concomitant]
  25. CARAFATE [Concomitant]
     Indication: GASTROOESOPHAGEAL REFLUX DISEASE
  26. PRILOSEC [Concomitant]
  27. DILAUDID [Concomitant]
  28. NEURONTIN [Concomitant]
  29. LORTAB [Concomitant]
  30. LIDODERM [Concomitant]
  31. DESYREL [Concomitant]
     Indication: INSOMNIA
  32. MORPHINE [Concomitant]
  33. ANCEF [Concomitant]
  34. ROBITUSSIN WITH CODEINE [Concomitant]
  35. CYMBALTA [Concomitant]
     Indication: ANXIETY DISORDER
  36. SYNTHROID [Concomitant]
     Indication: HYPOTHYROIDISM
  37. CLARITIN-D [Concomitant]
     Indication: SINUSITIS
  38. ATIVAN [Concomitant]
  39. ZANAFLEX [Concomitant]
     Indication: TENSION HEADACHE
  40. ZOFRAN [Concomitant]
  41. PROMETHAZINE [Concomitant]
     Indication: NAUSEA
  42. LEVAQUIN [Concomitant]
  43. CALCARB+D [Concomitant]
  44. LOVAZA [Concomitant]
  45. K-DUR [Concomitant]
     Indication: OEDEMA
  46. OSCAL-D [Concomitant]

REACTIONS (4)
  - Pyrexia [Not Recovered/Not Resolved]
  - Oral mucosal blistering [Recovered/Resolved]
  - Headache [Not Recovered/Not Resolved]
  - Nausea [Not Recovered/Not Resolved]
